FAERS Safety Report 9463662 (Version 2)
Quarter: 2013Q3

REPORT INFORMATION
  Report Type: Spontaneous
  Country: JP (occurrence: JP)
  Receive Date: 20130819
  Receipt Date: 20130924
  Transmission Date: 20140515
  Serious: Yes (Hospitalization, Other)
  Sender: FDA-Public Use
  Company Number: JP-AMGEN-JPNSP2013057407

PATIENT
  Age: 61 Year
  Sex: Female
  Weight: 42 kg

DRUGS (14)
  1. ENBREL [Suspect]
     Indication: RHEUMATOID ARTHRITIS
     Dosage: 25 MG, WEEKLY
     Route: 065
     Dates: start: 20110805
  2. ENBREL [Suspect]
     Dosage: 25 MG, WEEKLY
     Route: 065
     Dates: start: 20110826, end: 20120302
  3. ENBREL [Suspect]
     Dosage: 25 MG, 2 X/DAY
     Route: 065
     Dates: start: 20120701
  4. ENBREL [Suspect]
     Dosage: UNK
     Route: 065
     Dates: start: 201208
  5. ENBREL [Suspect]
     Dosage: 25 MG, EVERY 5 OR 6 DAYS
     Route: 065
     Dates: start: 20121002, end: 20121207
  6. CINAL [Concomitant]
     Indication: PEMPHIGOID
     Dosage: 1 DF, 3X/DAY
     Route: 048
     Dates: start: 20040804
  7. FOIPAN [Concomitant]
     Indication: AMYLASE INCREASED
     Dosage: 200 MG, 3X/DAY
     Route: 048
     Dates: start: 20050413
  8. OMEPRAL [Concomitant]
     Indication: PEMPHIGOID
     Dosage: 20 MG, 1X/DAY
     Route: 048
     Dates: start: 20081029
  9. BREDININ [Concomitant]
     Indication: RHEUMATOID ARTHRITIS
     Dosage: 150 MG, 1X/DAY
     Route: 048
     Dates: start: 20041122
  10. PREDONINE                          /00016201/ [Concomitant]
     Indication: PEMPHIGOID
     Dosage: 50 MG, 1X/DAY
     Route: 048
     Dates: start: 20121228
  11. PREDNISOLONE [Concomitant]
     Indication: PEMPHIGOID
     Dosage: 2 MG, 1X/DAY
     Route: 048
     Dates: start: 20121228
  12. ALLELOCK [Concomitant]
     Indication: PEMPHIGOID
     Dosage: 5 MG, 2X/DAY
     Route: 048
     Dates: start: 20120120
  13. BONALON [Concomitant]
     Indication: PEMPHIGOID
     Dosage: 35 MG, 1X/DAY
     Route: 048
     Dates: start: 20070613
  14. ATARAX-P                           /00058402/ [Concomitant]
     Indication: PEMPHIGOID
     Dosage: 25 MG, 1X/DAY
     Route: 048
     Dates: start: 20120127

REACTIONS (1)
  - Pemphigoid [Recovered/Resolved]
